FAERS Safety Report 23610902 (Version 7)
Quarter: 2024Q3

REPORT INFORMATION
  Report Type: Spontaneous
  Country: CA (occurrence: CA)
  Receive Date: 20240308
  Receipt Date: 20240705
  Transmission Date: 20241017
  Serious: No
  Sender: PFIZER
  Company Number: CA-PFIZER INC-202400012925

PATIENT
  Age: 60 Year
  Sex: Female

DRUGS (3)
  1. ABRILADA [Suspect]
     Active Substance: ADALIMUMAB-AFZB
     Indication: Psoriasis
     Dosage: 40 MG, WEEKLY
     Route: 058
     Dates: start: 20240213, end: 202403
  2. ABRILADA [Suspect]
     Active Substance: ADALIMUMAB-AFZB
     Dosage: 40 MG, WEEKLY
     Route: 058
     Dates: start: 2024, end: 2024
  3. BETADERM [Concomitant]
     Active Substance: BETAMETHASONE VALERATE
     Dosage: UNK

REACTIONS (4)
  - Arthralgia [Recovering/Resolving]
  - Pain in extremity [Recovering/Resolving]
  - Off label use [Unknown]
  - Device defective [Unknown]

NARRATIVE: CASE EVENT DATE: 20240101
